FAERS Safety Report 22520504 (Version 1)
Quarter: 2023Q2

REPORT INFORMATION
  Report Type: Spontaneous
  Country: US (occurrence: None)
  Receive Date: 20230603
  Receipt Date: 20230603
  Transmission Date: 20230722
  Serious: Yes (Other)
  Sender: FDA-Public Use
  Company Number: None

PATIENT
  Age: 67 Year
  Sex: Female
  Weight: 69.75 kg

DRUGS (4)
  1. REPATHA [Suspect]
     Active Substance: EVOLOCUMAB
     Indication: Blood cholesterol increased
  2. Candesartin [Concomitant]
  3. Omerperazole [Concomitant]
  4. ASPIRIN [Concomitant]
     Active Substance: ASPIRIN

REACTIONS (2)
  - Hypertension [None]
  - Blood glucose increased [None]
